FAERS Safety Report 6224880-2 (Version None)
Quarter: 2009Q2

REPORT INFORMATION
  Report Type: 
  Country: None (occurrence: None)
  Receive Date: 20090612
  Receipt Date: 20090331
  Transmission Date: 20091009
  Serious: No
  Sender: FDA-Public Use
  Company Number: US-ABBOTT-09P-163-0565671-00

PATIENT
  Sex: Male
  Weight: 102.15 kg

DRUGS (4)
  1. HUMIRA [Suspect]
     Indication: PSORIATIC ARTHROPATHY
     Dosage: 6 MONTH LATER
     Route: 058
     Dates: start: 20070101, end: 20070101
  2. HUMIRA [Suspect]
     Indication: RHEUMATOID ARTHRITIS
     Route: 058
     Dates: start: 20070101, end: 20080501
  3. HUMIRA [Suspect]
     Route: 058
     Dates: start: 20080501, end: 20081101
  4. IBUPROFEN [Concomitant]
     Indication: PSORIATIC ARTHROPATHY
     Route: 048

REACTIONS (2)
  - ARTHRALGIA [None]
  - DRUG INEFFECTIVE [None]
